FAERS Safety Report 17370286 (Version 4)
Quarter: 2021Q2

REPORT INFORMATION
  Report Type: Report from Study
  Country: GB (occurrence: GB)
  Receive Date: 20200205
  Receipt Date: 20210630
  Transmission Date: 20210716
  Serious: Yes (Death, Hospitalization)
  Sender: FDA-Public Use
  Company Number: GB-TEVA-2020-GB-1181045

PATIENT
  Age: 45 Year
  Sex: Female

DRUGS (34)
  1. DOCETAXEL. [Suspect]
     Active Substance: DOCETAXEL
     Indication: BREAST CANCER METASTATIC
     Dosage: 140 MG
     Route: 042
     Dates: start: 20160316
  2. PERTUZUMAB. [Suspect]
     Active Substance: PERTUZUMAB
     Dosage: 420 MILLIGRAM
     Route: 042
     Dates: start: 20160406
  3. DEXAMETHASONE. [Concomitant]
     Active Substance: DEXAMETHASONE
     Dosage: 2 MG
     Route: 048
     Dates: start: 20170918
  4. DEXAMETHASONE. [Concomitant]
     Active Substance: DEXAMETHASONE
     Dosage: 4 MILLIGRAM DAILY; 4 MG
     Route: 048
     Dates: start: 20170830, end: 20170914
  5. METOCLOPRAMIDE. [Concomitant]
     Active Substance: METOCLOPRAMIDE
     Dosage: 10 MG
     Route: 048
     Dates: start: 20170201
  6. DESUNIN [Concomitant]
     Active Substance: CHOLECALCIFEROL
     Dosage: 800 IU
     Route: 048
     Dates: start: 20160330
  7. DEXAMETHASONE. [Concomitant]
     Active Substance: DEXAMETHASONE
     Dosage: 8 MILLIGRAM DAILY; 8 MG
     Route: 042
     Dates: start: 20170913, end: 20170913
  8. DICLOFENAC [Concomitant]
     Active Substance: DICLOFENAC
     Dosage: 75 MILLIGRAM, 150 MG
     Route: 048
  9. NEFOPAM [Concomitant]
     Active Substance: NEFOPAM
     Dosage: 30 MG
     Route: 048
     Dates: start: 20160907
  10. DICLOFENAC [Concomitant]
     Active Substance: DICLOFENAC
     Dosage: 150 MILLIGRAM, QD (75 MG, 0.5 DAY),
     Route: 048
  11. FILGRASTIM [Concomitant]
     Active Substance: FILGRASTIM
     Dosage: 300 MCG
     Route: 058
     Dates: start: 20160407
  12. DENOSUMAB [Concomitant]
     Active Substance: DENOSUMAB
     Dosage: 120 MG
     Route: 042
     Dates: start: 20160727
  13. TRASTUZUMAB. [Suspect]
     Active Substance: TRASTUZUMAB
     Indication: BREAST CANCER METASTATIC
     Dosage: MAINTENANCE DOSE (6 MG/KG)
     Route: 041
     Dates: start: 20160406
  14. PERTUZUMAB. [Suspect]
     Active Substance: PERTUZUMAB
     Indication: BREAST CANCER METASTATIC
     Route: 042
     Dates: start: 20160317, end: 20160317
  15. CYCLIZINE [Concomitant]
     Active Substance: CYCLIZINE
     Dosage: 150 MG, QD
     Route: 048
  16. COCODAMOL [Concomitant]
     Active Substance: ACETAMINOPHEN\CODEINE PHOSPHATE
     Indication: BONE PAIN
     Dosage: 30 MG
     Route: 048
  17. VITAMIN B6 [Concomitant]
     Active Substance: PYRIDOXINE HYDROCHLORIDE
     Dosage: 1.3 MG
     Route: 048
     Dates: start: 20170215
  18. TRASTUZUMAB. [Suspect]
     Active Substance: TRASTUZUMAB
     Dosage: 577.5 MG ,LOADING DOSE (8 MG/KG)
     Route: 041
     Dates: start: 20160317, end: 20160317
  19. DEXAMETHASONE. [Concomitant]
     Active Substance: DEXAMETHASONE
     Indication: DIZZINESS
     Dosage: 1 MG
     Route: 048
     Dates: start: 20160416
  20. FILGRASTIM [Concomitant]
     Active Substance: FILGRASTIM
     Dosage: 300 MCG
     Route: 058
     Dates: start: 20160317, end: 20160321
  21. METOCLOPRAMIDE. [Concomitant]
     Active Substance: METOCLOPRAMIDE
     Indication: PROPHYLAXIS
     Dosage: 10 MG
     Route: 042
     Dates: start: 20160316, end: 20160316
  22. CYCLIZINE [Concomitant]
     Active Substance: CYCLIZINE
     Dosage: 50 MG,0.33 DAY
     Route: 042
     Dates: start: 20160406, end: 20160406
  23. GABAPENTIN. [Concomitant]
     Active Substance: GABAPENTIN
     Route: 048
     Dates: start: 20170215
  24. AMITRIPTYLINE [Concomitant]
     Active Substance: AMITRIPTYLINE
     Dosage: 25 MG
     Route: 048
     Dates: start: 20170215
  25. DEXAMETHASONE. [Concomitant]
     Active Substance: DEXAMETHASONE
     Indication: PROPHYLAXIS
     Dosage: 8 MILLIGRAM DAILY; 8 MG
     Route: 048
     Dates: start: 20160407
  26. DEXAMETHASONE. [Concomitant]
     Active Substance: DEXAMETHASONE
     Dosage: 4 MG
     Route: 048
     Dates: start: 20170914, end: 20170917
  27. PARACETAMOL [Concomitant]
     Active Substance: ACETAMINOPHEN
     Indication: BONE PAIN
     Dosage: 1 G
     Route: 048
  28. ZOLEDRONIC ACID [Concomitant]
     Active Substance: ZOLEDRONIC ACID
     Dosage: 4 MG
     Route: 042
     Dates: start: 20160317
  29. DEXAMETHASONE. [Concomitant]
     Active Substance: DEXAMETHASONE
     Dosage: 8 MILLIGRAM DAILY; 8 MG
     Route: 048
     Dates: start: 20160317, end: 20160320
  30. DEXAMETHASONE. [Concomitant]
     Active Substance: DEXAMETHASONE
     Dosage: 8 MILLIGRAM DAILY;
     Route: 048
     Dates: start: 20160320
  31. DICLOFENAC [Concomitant]
     Active Substance: DICLOFENAC
     Indication: BONE PAIN
     Dosage: 75 MILLIGRAM DAILY;
     Route: 048
  32. DERMOL [Concomitant]
     Active Substance: BENZALKONIUM CHLORIDE\CHLORHEXIDINE HYDROCHLORIDE\ISOPROPYL MYRISTATE\PARAFFIN
     Indication: DERMATITIS
     Route: 061
     Dates: start: 20160330
  33. ADCAL?D3 [Concomitant]
     Active Substance: CALCIUM CARBONATE\CHOLECALCIFEROL
     Indication: PROPHYLAXIS
     Dosage: 1 DOSAGE FORMS DAILY; 1 DOSAGE FORMS
     Route: 048
     Dates: start: 20160317
  34. BUSCOPAN [Concomitant]
     Active Substance: BUTYLSCOPOLAMINE BROMIDE
     Dosage: 10 MG
     Route: 048
     Dates: start: 20170201

REACTIONS (11)
  - Nasal discomfort [Not Recovered/Not Resolved]
  - Dermatitis [Recovered/Resolved]
  - Vomiting [Recovered/Resolved]
  - Bone pain [Not Recovered/Not Resolved]
  - Sepsis [Recovered/Resolved]
  - Urinary tract infection [Recovered/Resolved]
  - Naevus haemorrhage [Unknown]
  - Mouth ulceration [Recovering/Resolving]
  - Diarrhoea [Recovered/Resolved]
  - Acute kidney injury [Recovered/Resolved]
  - Diarrhoea [Recovered/Resolved]

NARRATIVE: CASE EVENT DATE: 20160330
